FAERS Safety Report 5816443-5 (Version None)
Quarter: 2008Q3

REPORT INFORMATION
  Report Type: 
  Country: None (occurrence: None)
  Receive Date: 20080721
  Receipt Date: 20080513
  Transmission Date: 20090109
  Serious: No
  Sender: FDA-Public Use
  Company Number: US-BAUSCH-2008BL002133

PATIENT
  Age: 41 Year
  Sex: Female
  Weight: 62 kg

DRUGS (4)
  1. OPCON-A [Suspect]
     Route: 047
     Dates: start: 20080512, end: 20080513
  2. OPCON-A [Suspect]
     Indication: EYE ALLERGY
     Route: 047
     Dates: start: 20080512, end: 20080513
  3. VITAMIN TAB [Concomitant]
  4. ARMOUR THYROID [Concomitant]
     Indication: THYROID DISORDER
     Route: 048
     Dates: start: 20060513

REACTIONS (3)
  - HEADACHE [None]
  - MYDRIASIS [None]
  - VISION BLURRED [None]
